FAERS Safety Report 7245579-X (Version None)
Quarter: 2011Q1

REPORT INFORMATION
  Report Type: 
  Country: None (occurrence: None)
  Receive Date: 20110126
  Receipt Date: 20110119
  Transmission Date: 20110831
  Serious: Yes (Other)
  Sender: FDA-Public Use
  Company Number: US-PFIZER INC-US-WYE-H18501010

PATIENT
  Sex: Female

DRUGS (2)
  1. PRISTIQ [Suspect]
     Dosage: UNK
     Route: 065
  2. PREMARIN [Suspect]
     Dosage: UNK
     Route: 065

REACTIONS (3)
  - INTERVERTEBRAL DISC DISORDER [None]
  - SURGERY [None]
  - ANORECTAL DISORDER [None]
